FAERS Safety Report 5143112-X (Version None)
Quarter: 2006Q4

REPORT INFORMATION
  Report Type: 
  Country: None (occurrence: None)
  Receive Date: 20061103
  Receipt Date: 20061030
  Transmission Date: 20070319
  Serious: Yes (Death)
  Sender: FDA-Public Use
  Company Number: TR-NOVOPROD-258132

PATIENT
  Age: 14 Year
  Sex: Female

DRUGS (4)
  1. NOVOSEVEN [Suspect]
     Indication: PULMONARY HAEMORRHAGE
  2. AMBISOME                           /00057501/ [Concomitant]
     Dosage: 50 MG, QD
     Route: 042
     Dates: start: 20061008
  3. TIENAM [Concomitant]
     Dosage: 2 G, QD
     Route: 042
     Dates: start: 20061008
  4. BACTRIM [Concomitant]
     Dosage: 1920 MG, QD
     Route: 042
     Dates: start: 20061008

REACTIONS (1)
  - PULMONARY HAEMORRHAGE [None]
